FAERS Safety Report 9253207 (Version 1)
Quarter: 2013Q2

REPORT INFORMATION
  Report Type: Spontaneous
  Country: US (occurrence: US)
  Receive Date: 20130424
  Receipt Date: 20130424
  Transmission Date: 20140414
  Serious: Yes (Hospitalization)
  Sender: FDA-Public Use
  Company Number: US-BAXTER-2013BAX002822

PATIENT
  Age: 46 Year
  Sex: Female

DRUGS (6)
  1. DIANEAL LOW CALCIUM [Suspect]
     Indication: PERITONEAL DIALYSIS
     Route: 033
     Dates: start: 201210
  2. DIANEAL LOW CALCIUM [Suspect]
     Route: 033
  3. DIANEAL LOW CALCIUM [Suspect]
     Indication: PERITONEAL DIALYSIS
     Route: 033
     Dates: start: 201210
  4. DIANEAL LOW CALCIUM [Suspect]
     Route: 033
  5. EXTRANEAL [Suspect]
     Indication: PERITONEAL DIALYSIS
     Route: 033
     Dates: start: 201210
  6. EXTRANEAL [Suspect]
     Route: 033

REACTIONS (6)
  - Hernia [Recovered/Resolved]
  - Ultrafiltration failure [Unknown]
  - Dry skin [Recovered/Resolved]
  - Exfoliative rash [Recovered/Resolved]
  - Dehydration [Unknown]
  - Hypotension [Unknown]
